FAERS Safety Report 14885985 (Version 4)
Quarter: 2018Q2

REPORT INFORMATION
  Report Type: Report from Study
  Country: US (occurrence: US)
  Receive Date: 20180512
  Receipt Date: 20180612
  Transmission Date: 20180711
  Serious: No
  Sender: FDA-Public Use
  Company Number: PHEH2018US018458

PATIENT
  Sex: Female
  Weight: 68.3 kg

DRUGS (2)
  1. COSENTYX [Suspect]
     Active Substance: SECUKINUMAB
     Indication: PSORIATIC ARTHROPATHY
  2. COSENTYX [Suspect]
     Active Substance: SECUKINUMAB
     Indication: PSORIASIS
     Dosage: 300 MG, EVERY 4-6 WEEKS AS DIRECTED
     Route: 058

REACTIONS (4)
  - Inappropriate schedule of drug administration [Unknown]
  - Middle ear effusion [Unknown]
  - Secretion discharge [Unknown]
  - Ear infection [Unknown]
